FAERS Safety Report 8424803-1 (Version None)
Quarter: 2012Q2

REPORT INFORMATION
  Report Type: 
  Country: None (occurrence: None)
  Receive Date: 20120605
  Receipt Date: 20120605
  Transmission Date: 20120825
  Serious: Yes (Other)
  Sender: FDA-Public Use
  Company Number: None

PATIENT
  Age: 75 Year
  Sex: Female

DRUGS (1)
  1. ANASTROZOLE [Suspect]
     Indication: BREAST CANCER
     Dosage: ONE TABLET ONCE DAILY PO
     Route: 048
     Dates: start: 20110801, end: 20120602

REACTIONS (11)
  - BURNING SENSATION [None]
  - HOT FLUSH [None]
  - HYPERHIDROSIS [None]
  - EYE PRURITUS [None]
  - HEADACHE [None]
  - PELVIC PAIN [None]
  - PRURITUS [None]
  - BACK PAIN [None]
  - MYALGIA [None]
  - SKIN BURNING SENSATION [None]
  - BONE PAIN [None]
